FAERS Safety Report 5574978-7 (Version None)
Quarter: 2007Q4

REPORT INFORMATION
  Report Type: 
  Country: None (occurrence: None)
  Receive Date: 20071227
  Receipt Date: 20071220
  Transmission Date: 20080405
  Serious: Yes (Life-Threatening, Hospitalization)
  Sender: FDA-Public Use
  Company Number: B0500695A

PATIENT
  Age: 72 Year
  Sex: Female
  Weight: 61 kg

DRUGS (7)
  1. LAPATINIB [Suspect]
     Dosage: 1250MG PER DAY
     Route: 048
     Dates: start: 20071109, end: 20071128
  2. XELODA [Suspect]
     Dosage: 2500MG PER DAY
     Route: 048
     Dates: start: 20071023, end: 20071128
  3. ZELITREX [Concomitant]
     Dosage: 500MG TWICE PER DAY
     Route: 048
     Dates: end: 20071114
  4. RAMIPRIL [Concomitant]
     Dosage: 5MG PER DAY
     Route: 048
  5. TRILEPTAL [Concomitant]
     Indication: CONVULSION PROPHYLAXIS
     Dosage: 300MG TWICE PER DAY
     Route: 048
  6. THIOTEPA [Concomitant]
     Indication: BREAST CANCER
     Dosage: 10MG EVERY TWO WEEKS
     Dates: start: 20071108, end: 20071123
  7. SOLUPRED [Concomitant]
     Dosage: 60MG PER DAY
     Route: 048
     Dates: start: 20071025

REACTIONS (3)
  - DIARRHOEA [None]
  - HYPOVOLAEMIC SHOCK [None]
  - VOMITING [None]
